FAERS Safety Report 24607126 (Version 1)
Quarter: 2024Q4

REPORT INFORMATION
  Report Type: Spontaneous
  Country: US (occurrence: None)
  Receive Date: 20241111
  Receipt Date: 20241111
  Transmission Date: 20250115
  Serious: No
  Sender: Public
  Company Number: None

PATIENT
  Age: 60 Year
  Sex: Female
  Weight: 86.18 kg

DRUGS (1)
  1. ENBREL [Suspect]
     Active Substance: ETANERCEPT
     Indication: Osteoporosis
     Dosage: OTHER FREQUENCY : WKLYUSINGTHEAUTOTOUCHDEVICEASDIRECTED;?
     Route: 058
     Dates: start: 202410

REACTIONS (1)
  - Illness [None]
